FAERS Safety Report 22098956 (Version 1)
Quarter: 2023Q1

REPORT INFORMATION
  Report Type: Report from Study
  Country: US (occurrence: US)
  Receive Date: 20230315
  Receipt Date: 20230315
  Transmission Date: 20230418
  Serious: Yes (Death)
  Sender: FDA-Public Use
  Company Number: US-MYLANLABS-2023M1027667

PATIENT

DRUGS (4)
  1. DOXORUBICIN [Suspect]
     Active Substance: DOXORUBICIN
     Indication: Hodgkin^s disease
     Dosage: 25 MILLIGRAM/SQ. METER, CYCLE (A+AVD REGIMEN: ON DAYS 1 AND 15 OF EACH 28-DAY CYCLE)
     Route: 042
  2. BRENTUXIMAB VEDOTIN [Suspect]
     Active Substance: BRENTUXIMAB VEDOTIN
     Indication: Hodgkin^s disease
     Dosage: 1.2 MILLIGRAM/KILOGRAM, CYCLE (A+AVD REGIMEN: ON DAYS 1 AND 15 OF EACH 28-DAY CYCLE)
     Route: 042
  3. DACARBAZINE [Suspect]
     Active Substance: DACARBAZINE
     Indication: Hodgkin^s disease
     Dosage: 375 MILLIGRAM/SQ. METER, CYCLE (A+AVD REGIMEN: ON DAYS 1 AND 15 OF EACH 28-DAY CYCLE)
     Route: 042
  4. VINBLASTINE [Suspect]
     Active Substance: VINBLASTINE
     Indication: Hodgkin^s disease
     Dosage: 6 MILLIGRAM/SQ. METER, CYCLE (A+AVD REGIMEN: ON DAYS 1 AND 15 OF EACH 28-DAY CYCLE)
     Route: 042

REACTIONS (1)
  - Multiple organ dysfunction syndrome [Fatal]
